FAERS Safety Report 5788370-3 (Version None)
Quarter: 2008Q2

REPORT INFORMATION
  Report Type: 
  Country: None (occurrence: None)
  Receive Date: 20080620
  Receipt Date: 20080606
  Transmission Date: 20081010
  Serious: Yes (Other)
  Sender: FDA-Public Use
  Company Number: 2008SP009203

PATIENT
  Sex: Female

DRUGS (1)
  1. COPPERTONE SPORT DRY LOTION, SPF 30 (HOMOSALATE/OCTINOXATE/OCTYL SALIC [Suspect]
     Indication: DRUG USE FOR UNKNOWN INDICATION
     Dosage: QD; TOP
     Route: 061
     Dates: start: 20080503, end: 20080504

REACTIONS (2)
  - ANAPHYLACTIC SHOCK [None]
  - PHOTOSENSITIVITY REACTION [None]
